FAERS Safety Report 5655513-1 (Version None)
Quarter: 2008Q1

REPORT INFORMATION
  Report Type: 
  Country: None (occurrence: None)
  Receive Date: 20080307
  Receipt Date: 20080226
  Transmission Date: 20080703
  Serious: Yes (Other)
  Sender: FDA-Public Use
  Company Number: JP-SANOFI-SYNTHELABO-A01200801594

PATIENT
  Age: 60 Year
  Sex: Female
  Weight: 72.6 kg

DRUGS (5)
  1. LIPITOR [Concomitant]
     Indication: HYPERLIPIDAEMIA
     Route: 065
  2. NORVASC [Concomitant]
     Indication: HYPERTENSION
     Route: 065
  3. COVERSYL [Concomitant]
     Indication: HYPERTENSION
     Route: 065
  4. OLMESARTAN MEDOXOMIL [Concomitant]
     Indication: HYPERTENSION
     Route: 065
  5. PLAVIX [Suspect]
     Indication: CEREBRAL INFARCTION
     Route: 048
     Dates: start: 20070819, end: 20070912

REACTIONS (1)
  - HEPATIC FUNCTION ABNORMAL [None]
